FAERS Safety Report 23948916 (Version 1)
Quarter: 2024Q2

REPORT INFORMATION
  Report Type: Report from Study
  Country: EG (occurrence: EG)
  Receive Date: 20240607
  Receipt Date: 20240607
  Transmission Date: 20240716
  Serious: Yes (Hospitalization, Other)
  Sender: FDA-Public Use
  Company Number: EG-ABBVIE-5787377

PATIENT
  Sex: Female

DRUGS (4)
  1. HUMIRA [Suspect]
     Active Substance: ADALIMUMAB
     Indication: Crohn^s disease
     Route: 058
     Dates: start: 201710
  2. HUMIRA [Suspect]
     Active Substance: ADALIMUMAB
     Route: 058
  3. HUMIRA [Suspect]
     Active Substance: ADALIMUMAB
     Route: 058
     Dates: start: 201708, end: 201709
  4. HUMIRA [Suspect]
     Active Substance: ADALIMUMAB
     Route: 058
     Dates: start: 201706, end: 201706

REACTIONS (7)
  - Food poisoning [Recovered/Resolved]
  - Vomiting [Recovered/Resolved]
  - Sleep disorder [Recovering/Resolving]
  - Intestinal cyst [Recovered/Resolved]
  - Intestinal fistula [Recovered/Resolved]
  - Headache [Unknown]
  - Appendicectomy [Recovered/Resolved]

NARRATIVE: CASE EVENT DATE: 20170101
